FAERS Safety Report 22928395 (Version 3)
Quarter: 2023Q4

REPORT INFORMATION
  Report Type: Spontaneous
  Country: US (occurrence: US)
  Receive Date: 20230911
  Receipt Date: 20231121
  Transmission Date: 20240110
  Serious: Yes (Other)
  Sender: FDA-Public Use
  Company Number: US-BRISTOL-MYERS SQUIBB COMPANY-2023-127553

PATIENT
  Age: 74 Year
  Sex: Female

DRUGS (1)
  1. REVLIMID [Suspect]
     Active Substance: LENALIDOMIDE
     Indication: Plasma cell myeloma
     Dosage: FREQ: 1 CAP DAILY FOR 21 DAYS/QD FOR 21 DAYS, THEN 7 DAYS OFF
     Route: 048

REACTIONS (4)
  - Fatigue [Unknown]
  - Amnesia [Unknown]
  - Hallucination [Unknown]
  - Abnormal dreams [Unknown]
